FAERS Safety Report 26008630 (Version 1)
Quarter: 2025Q4

REPORT INFORMATION
  Report Type: Spontaneous
  Country: JP (occurrence: JP)
  Receive Date: 20251106
  Receipt Date: 20251106
  Transmission Date: 20260118
  Serious: Yes (Hospitalization)
  Sender: MERCK SHARP & DOHME LLC
  Company Number: JP-009507513-2344125

PATIENT
  Age: 63 Year
  Sex: Female

DRUGS (5)
  1. PEMBROLIZUMAB [Suspect]
     Active Substance: PEMBROLIZUMAB
     Indication: Invasive lobular breast carcinoma
  2. EPIRUBICIN [Suspect]
     Active Substance: EPIRUBICIN
     Indication: Invasive lobular breast carcinoma
  3. CYCLOPHOSPHAMIDE [Suspect]
     Active Substance: CYCLOPHOSPHAMIDE
     Indication: Invasive lobular breast carcinoma
  4. PACLITAXEL [Concomitant]
     Active Substance: PACLITAXEL
     Indication: Invasive lobular breast carcinoma
  5. CARBOPLATIN [Concomitant]
     Active Substance: CARBOPLATIN
     Indication: Invasive lobular breast carcinoma
     Dosage: AREA UNDER THE CONCENTRATION TIME CURVE 5, EVERY 3 WEEKS

REACTIONS (2)
  - Interstitial lung disease [Recovered/Resolved]
  - Hypersensitivity pneumonitis [Recovered/Resolved]
